FAERS Safety Report 6771721-0 (Version None)
Quarter: 2010Q2

REPORT INFORMATION
  Report Type: 
  Country: None (occurrence: None)
  Receive Date: 20100616
  Receipt Date: 20090914
  Transmission Date: 20101027
  Serious: No
  Sender: FDA-Public Use
  Company Number: US-ASTRAZENECA-2009SE12952

PATIENT
  Age: 57 Year
  Sex: Female
  Weight: 72.6 kg

DRUGS (6)
  1. ATACAND [Suspect]
     Indication: HYPERTENSION
     Route: 048
     Dates: start: 20090821
  2. BLACK COHOSH [Concomitant]
  3. COENZYME Q10 [Concomitant]
  4. BLACK CURRENT OIL [Concomitant]
  5. MULTI-VITAMINS [Concomitant]
  6. FISH OIL [Concomitant]

REACTIONS (1)
  - HOT FLUSH [None]
